FAERS Safety Report 9301918 (Version 1)
Quarter: 2013Q2

REPORT INFORMATION
  Report Type: Spontaneous
  Country: US (occurrence: US)
  Receive Date: 20130521
  Receipt Date: 20130521
  Transmission Date: 20140414
  Serious: Yes (Death)
  Sender: FDA-Public Use
  Company Number: US-PFIZER INC-2013151906

PATIENT
  Age: 50 Year
  Sex: Male

DRUGS (1)
  1. REVATIO [Suspect]
     Dosage: 20 MG 2 TID

REACTIONS (2)
  - Death [Fatal]
  - Drug prescribing error [Unknown]
